FAERS Safety Report 8377747-8 (Version None)
Quarter: 2012Q2

REPORT INFORMATION
  Report Type: 
  Country: None (occurrence: None)
  Receive Date: 20120522
  Receipt Date: 20120514
  Transmission Date: 20120825
  Serious: Yes (Death)
  Sender: FDA-Public Use
  Company Number: PT-VIIV HEALTHCARE LIMITED-B0802526A

PATIENT

DRUGS (1)
  1. MARAVIROC [Suspect]
     Indication: PRODUCT USED FOR UNKNOWN INDICATION
     Route: 065

REACTIONS (2)
  - ACUTE MYOCARDIAL INFARCTION [None]
  - ISCHAEMIC CARDIOMYOPATHY [None]
